FAERS Safety Report 16012816 (Version 1)
Quarter: 2019Q1

REPORT INFORMATION
  Report Type: Spontaneous
  Country: US (occurrence: US)
  Receive Date: 20190227
  Receipt Date: 20190227
  Transmission Date: 20190418
  Serious: Yes (Other)
  Sender: FDA-Public Use
  Company Number: None

PATIENT
  Age: 48 Month
  Sex: Female
  Weight: 60.33 kg

DRUGS (2)
  1. NOVIR REYATAZ [Concomitant]
  2. LEXISCAN [Suspect]
     Active Substance: REGADENOSON
     Indication: PRODUCT USED FOR UNKNOWN INDICATION
     Dosage: ?          QUANTITY:20 LNJECTION(S);?
     Route: 042

REACTIONS (2)
  - Cardiac discomfort [None]
  - Post procedural complication [None]

NARRATIVE: CASE EVENT DATE: 20190215
